FAERS Safety Report 4428716-1 (Version None)
Quarter: 2004Q3

REPORT INFORMATION
  Report Type: 
  Country: None (occurrence: None)
  Receive Date: 20040818
  Receipt Date: 20040128
  Transmission Date: 20050211
  Serious: No
  Sender: FDA-Public Use
  Company Number: US-BRISTOL-MYERS SQUIBB COMPANY-12489498

PATIENT
  Age: 109 Year
  Sex: Male
  Weight: 54 kg

DRUGS (6)
  1. TEQUIN [Suspect]
     Indication: PNEUMONIA
     Route: 042
     Dates: start: 20040126, end: 20040130
  2. LANOXIN [Concomitant]
  3. PROTONIX [Concomitant]
  4. ASPIRIN [Concomitant]
  5. NITRO-DUR [Concomitant]
  6. DEXTROSE 5% 1/2 NORMAL SALINE + KCL [Concomitant]
     Dosage: LARGE VOLUME
     Route: 042

REACTIONS (1)
  - INJECTION SITE REACTION [None]
